FAERS Safety Report 19685276 (Version 1)
Quarter: 2021Q3

REPORT INFORMATION
  Report Type: Spontaneous
  Country: US (occurrence: US)
  Receive Date: 20210811
  Receipt Date: 20210811
  Transmission Date: 20211014
  Serious: Yes (Hospitalization)
  Sender: FDA-Public Use
  Company Number: None

PATIENT
  Sex: Female

DRUGS (1)
  1. SPRYCEL [Suspect]
     Active Substance: DASATINIB
     Indication: CHRONIC MYELOID LEUKAEMIA
     Dosage: ?          OTHER FREQUENCY:Q MON, WED, FRI;?
     Route: 048
     Dates: start: 20210205

REACTIONS (4)
  - Arthralgia [None]
  - Gastrointestinal disorder [None]
  - Feeling abnormal [None]
  - Fatigue [None]
